FAERS Safety Report 15642966 (Version 1)
Quarter: 2018Q4

REPORT INFORMATION
  Report Type: Spontaneous
  Country: SE (occurrence: SE)
  Receive Date: 20181121
  Receipt Date: 20181121
  Transmission Date: 20190205
  Serious: Yes (Other)
  Sender: FDA-Public Use
  Company Number: SE-ORION CORPORATION ORION PHARMA-18_00004831

PATIENT
  Age: 60 Year
  Sex: Male

DRUGS (6)
  1. LEVOCAR [Concomitant]
     Route: 065
     Dates: start: 20170522, end: 2018
  2. XADAGO [Concomitant]
     Active Substance: SAFINAMIDE MESYLATE
     Route: 065
     Dates: start: 20171003, end: 2018
  3. ZOMIG [Concomitant]
     Active Substance: ZOLMITRIPTAN
     Route: 065
  4. REQUIP [Concomitant]
     Active Substance: ROPINIROLE HYDROCHLORIDE
     Route: 065
     Dates: start: 2013, end: 2018
  5. STALEVO [Suspect]
     Active Substance: CARBIDOPA\ENTACAPONE\LEVODOPA
     Indication: PARKINSON^S DISEASE
     Dosage: STRENGTH: 100 MG/25 MG/200 MG (100 MG 1X4)
     Route: 048
     Dates: start: 20180511, end: 20180620
  6. ALFUZOSIN [Concomitant]
     Active Substance: ALFUZOSIN
     Route: 065
     Dates: start: 2014, end: 2018

REACTIONS (1)
  - Epistaxis [Recovered/Resolved]

NARRATIVE: CASE EVENT DATE: 20180518
